FAERS Safety Report 4784661-3 (Version None)
Quarter: 2005Q3

REPORT INFORMATION
  Report Type: 
  Country: None (occurrence: None)
  Receive Date: 20050929
  Receipt Date: 20050929
  Transmission Date: 20060218
  Serious: Yes (Hospitalization)
  Sender: FDA-Public Use
  Company Number: None

PATIENT
  Age: 48 Year
  Sex: Female
  Weight: 59.6934 kg

DRUGS (2)
  1. SEPTOCAINE [Suspect]
     Indication: DENTAL TREATMENT
     Dosage: 1.8 CC X 1 DENTAL BLOCK
     Route: 004
     Dates: start: 20050714
  2. LIDOCAINE 2% [Suspect]
     Dosage: 1.8 CC X 1 DENTAL BLOCK
     Route: 004
     Dates: start: 20050714

REACTIONS (7)
  - ANAESTHETIC COMPLICATION [None]
  - CHEST PAIN [None]
  - DIZZINESS [None]
  - DRUG EFFECT DECREASED [None]
  - DRY MOUTH [None]
  - MUSCLE CONTRACTIONS INVOLUNTARY [None]
  - TREMOR [None]
